FAERS Safety Report 9344518 (Version 1)
Quarter: 2013Q2

REPORT INFORMATION
  Report Type: Spontaneous
  Country: US (occurrence: None)
  Receive Date: 20130612
  Receipt Date: 20130612
  Transmission Date: 20140414
  Serious: Yes (Other)
  Sender: FDA-Public Use
  Company Number: None

PATIENT
  Age: 32 Year
  Sex: Female
  Weight: 88.45 kg

DRUGS (1)
  1. METHYLPREDNISOLONE [Suspect]

REACTIONS (3)
  - Injection site abscess [None]
  - Injection site swelling [None]
  - Injection site erythema [None]
